FAERS Safety Report 10573088 (Version 3)
Quarter: 2014Q4

REPORT INFORMATION
  Report Type: Report from Study
  Country: CO (occurrence: CO)
  Receive Date: 20141110
  Receipt Date: 20141118
  Transmission Date: 20150529
  Serious: Yes (Death, Hospitalization, Disabling, Other)
  Sender: FDA-Public Use
  Company Number: CO-AMGEN-COLSL2014077878

PATIENT
  Age: 79 Year
  Sex: Female
  Weight: 65 kg

DRUGS (1)
  1. VECTIBIX [Suspect]
     Active Substance: PANITUMUMAB
     Indication: COLORECTAL CANCER
     Dosage: UNK, EVERY 15 DAYS
     Route: 042
     Dates: start: 20140801, end: 20140923

REACTIONS (4)
  - Malnutrition [Not Recovered/Not Resolved]
  - Death [Fatal]
  - Immunodeficiency [Unknown]
  - Gastrostomy [Unknown]

NARRATIVE: CASE EVENT DATE: 20141004
